FAERS Safety Report 5391894-4 (Version None)
Quarter: 2007Q3

REPORT INFORMATION
  Report Type: 
  Country: None (occurrence: None)
  Receive Date: 20070718
  Receipt Date: 20070627
  Transmission Date: 20080115
  Serious: Yes (Death)
  Sender: FDA-Public Use
  Company Number: AE-607-212

PATIENT
  Sex: Female

DRUGS (2)
  1. LIDODERM [Suspect]
     Indication: CANCER PAIN
  2. RADIATION AND CHEMO TREATMENTS [Concomitant]

REACTIONS (4)
  - BONE PAIN [None]
  - DRUG INEFFECTIVE [None]
  - MYALGIA [None]
  - PAIN [None]
